FAERS Safety Report 7878978-3 (Version None)
Quarter: 2011Q4

REPORT INFORMATION
  Report Type: 
  Country: None (occurrence: None)
  Receive Date: 20111101
  Receipt Date: 20111018
  Transmission Date: 20120403
  Serious: Yes (Other)
  Sender: FDA-Public Use
  Company Number: PHHY2011GR93121

PATIENT
  Age: 65 Year
  Sex: Female

DRUGS (3)
  1. STEROIDS NOS [Concomitant]
     Indication: HYPERSENSITIVITY
     Route: 061
  2. ZOLEDRONIC ACID [Suspect]
     Indication: OSTEOPOROSIS
     Dosage: 5 MG, (15 MIN)
     Route: 042
  3. ANTIHISTAMINES [Concomitant]
     Indication: HYPERSENSITIVITY

REACTIONS (18)
  - ERYTHEMA [None]
  - DERMATOMYOSITIS [None]
  - RASH [None]
  - SKIN PLAQUE [None]
  - ALDOLASE INCREASED [None]
  - BLOOD LACTATE DEHYDROGENASE INCREASED [None]
  - RASH ERYTHEMATOUS [None]
  - ALANINE AMINOTRANSFERASE INCREASED [None]
  - FATIGUE [None]
  - ANTINUCLEAR ANTIBODY POSITIVE [None]
  - BLOOD CREATINE PHOSPHOKINASE INCREASED [None]
  - WEIGHT DECREASED [None]
  - RASH PAPULAR [None]
  - ASPARTATE AMINOTRANSFERASE INCREASED [None]
  - MUSCULAR WEAKNESS [None]
  - HEPATIC FUNCTION ABNORMAL [None]
  - PERIORBITAL OEDEMA [None]
  - MYALGIA [None]
